FAERS Safety Report 5918945-X (Version None)
Quarter: 2008Q4

REPORT INFORMATION
  Report Type: 
  Country: None (occurrence: None)
  Receive Date: 20081015
  Receipt Date: 20081003
  Transmission Date: 20090506
  Serious: Yes (Hospitalization, Other)
  Sender: FDA-Public Use
  Company Number: GR-WYE-H06314208

PATIENT
  Sex: Male

DRUGS (2)
  1. EFFEXOR [Suspect]
     Dosage: 3150 MG OVERDOSE AMOUNT
     Route: 064
  2. MIRTAZAPINE [Suspect]
     Dosage: 900 MG OVERDOSE AMOUNT
     Route: 064

REACTIONS (4)
  - CONVULSION NEONATAL [None]
  - NEONATAL RESPIRATORY DISTRESS SYNDROME [None]
  - PREMATURE BABY [None]
  - RHABDOMYOLYSIS [None]
